FAERS Safety Report 4556212-X (Version None)
Quarter: 2005Q1

REPORT INFORMATION
  Report Type: 
  Country: None (occurrence: None)
  Receive Date: 20050119
  Receipt Date: 20041104
  Transmission Date: 20050727
  Serious: Yes (Hospitalization, Disabling)
  Sender: FDA-Public Use
  Company Number: GB-MERCK-0411GBR00069

PATIENT
  Age: 53 Year
  Sex: Male
  Weight: 81 kg

DRUGS (3)
  1. PROSCAR [Suspect]
     Indication: BLADDER OBSTRUCTION
     Route: 048
     Dates: start: 20041028, end: 20041103
  2. ATENOLOL [Concomitant]
     Indication: HYPERTENSION
     Route: 065
     Dates: start: 19990629
  3. RABEPRAZOLE SODIUM [Concomitant]
     Indication: DYSPEPSIA
     Route: 065
     Dates: start: 20010723

REACTIONS (2)
  - EPIDIDYMITIS [None]
  - ORCHITIS [None]
